FAERS Safety Report 9008468 (Version 1)
Quarter: 2012Q4

REPORT INFORMATION
  Report Type: Spontaneous
  Country: US (occurrence: None)
  Receive Date: 20121227
  Receipt Date: 20121227
  Transmission Date: 20130627
  Serious: Yes (Other)
  Sender: FDA-Public Use
  Company Number: AUR-APL-2012-05512

PATIENT
  Age: 77 Year
  Sex: Male

DRUGS (1)
  1. RISPERIDONE (RISPERIDONE) [Suspect]
     Indication: BIPOLAR DISORDER

REACTIONS (4)
  - Parkinsonism [None]
  - Tardive dyskinesia [None]
  - Respiratory dyskinesia [None]
  - Delusion [None]
